FAERS Safety Report 25835910 (Version 1)
Quarter: 2025Q3

REPORT INFORMATION
  Report Type: Spontaneous
  Country: US (occurrence: US)
  Receive Date: 20250923
  Receipt Date: 20250923
  Transmission Date: 20251021
  Serious: No
  Sender: ELI LILLY AND COMPANY
  Company Number: US-ELI_LILLY_AND_COMPANY-US202509019629

PATIENT
  Age: 36 Year
  Sex: Female

DRUGS (3)
  1. INSULIN LISPRO [Suspect]
     Active Substance: INSULIN LISPRO
     Indication: Gestational diabetes
     Route: 058
     Dates: start: 202508
  2. OMEPRAZOLE [Concomitant]
     Active Substance: OMEPRAZOLE
     Indication: Product used for unknown indication
  3. LANTUS [Concomitant]
     Active Substance: INSULIN GLARGINE
     Indication: Gestational diabetes

REACTIONS (6)
  - Gestational hypertension [Unknown]
  - Carpal tunnel syndrome [Unknown]
  - Dyspepsia [Unknown]
  - Anxiety disorder [Unknown]
  - Maternal exposure during pregnancy [Unknown]
  - Nausea [Unknown]
